FAERS Safety Report 5524195-1 (Version None)
Quarter: 2007Q4

REPORT INFORMATION
  Report Type: 
  Country: None (occurrence: None)
  Receive Date: 20071121
  Receipt Date: 20071109
  Transmission Date: 20080405
  Serious: Yes (Death, Hospitalization)
  Sender: FDA-Public Use
  Company Number: GR-PFIZER INC-2007094797

PATIENT
  Sex: Male

DRUGS (7)
  1. DOXORUBICIN HCL [Suspect]
     Indication: BLADDER CANCER
     Dosage: TEXT:60-FREQ:ONCE PER CYCLE
     Dates: start: 20070808, end: 20070912
  2. METHOTREXATE [Suspect]
     Indication: BLADDER CANCER
     Dosage: TEXT:60-FREQ:ONCE PER CYCLE
     Dates: start: 20070808, end: 20070912
  3. CISPLATIN [Suspect]
     Indication: BLADDER CANCER
     Dosage: TEXT:140-FREQ:ONCE PER CYCLE
     Dates: start: 20070808, end: 20070912
  4. VELBE [Suspect]
     Indication: BLADDER CANCER
     Dosage: TEXT:6-FREQ:ONCE PER CYCLE
     Dates: start: 20070808, end: 20070912
  5. ZOMETA [Concomitant]
     Indication: BLADDER CANCER
     Dosage: TEXT:4-FREQ:ONCE PER CYCLE
     Dates: start: 20070808, end: 20070912
  6. GRANULOKINE [Concomitant]
     Indication: BLADDER CANCER
     Dosage: TEXT:48-FREQ:7 DAYS PER CYCLE
     Dates: start: 20070808, end: 20070912
  7. ARANESP [Concomitant]
     Indication: BLADDER CANCER
     Dosage: TEXT:300-FREQ:ONCE
     Dates: start: 20070808, end: 20070808

REACTIONS (5)
  - CONVULSION [None]
  - FEBRILE NEUTROPENIA [None]
  - HYPOCALCAEMIA [None]
  - SEPTIC SHOCK [None]
  - SUDDEN DEATH [None]
